FAERS Safety Report 9385117 (Version 1)
Quarter: 2013Q3

REPORT INFORMATION
  Report Type: Spontaneous
  Country: FR (occurrence: None)
  Receive Date: 20130701
  Receipt Date: 20130701
  Transmission Date: 20140515
  Serious: Yes (Other)
  Sender: FDA-Public Use
  Company Number: 2013P1009729

PATIENT
  Sex: 0

DRUGS (1)
  1. ISOTRETINOIN [Suspect]

REACTIONS (2)
  - Hypersomnia [None]
  - Hypersomnia-bulimia syndrome [None]
